FAERS Safety Report 6102125-1 (Version None)
Quarter: 2009Q1

REPORT INFORMATION
  Report Type: 
  Country: None (occurrence: None)
  Receive Date: 20090304
  Receipt Date: 20090225
  Transmission Date: 20090719
  Serious: Yes (Death)
  Sender: FDA-Public Use
  Company Number: NO-MERCK-0902NOR00017

PATIENT
  Age: 73 Year
  Sex: Male

DRUGS (6)
  1. COZAAR [Suspect]
     Indication: HYPERTENSION
     Route: 048
  2. ATORVASTATIN CALCIUM [Concomitant]
     Indication: HYPERCHOLESTEROLAEMIA
     Route: 048
  3. BUMETANIDE [Concomitant]
     Route: 048
  4. WARFARIN SODIUM [Concomitant]
     Indication: AORTIC VALVE REPLACEMENT
     Route: 048
  5. ALLOPURINOL [Suspect]
     Indication: PODAGRA
     Route: 048
     Dates: start: 20081101, end: 20090115
  6. BISOPROLOL FUMARATE [Concomitant]
     Route: 048

REACTIONS (2)
  - RENAL FAILURE ACUTE [None]
  - THROMBOCYTOPENIA [None]
